FAERS Safety Report 10343276 (Version 1)
Quarter: 2014Q3

REPORT INFORMATION
  Report Type: Spontaneous
  Country: NZ (occurrence: NZ)
  Receive Date: 20140725
  Receipt Date: 20140725
  Transmission Date: 20150326
  Serious: Yes (Other)
  Sender: FDA-Public Use
  Company Number: NZ-MUNDIPHARMA DS AND PHARMACOVIGILANCE-GBR-2014-0019620

PATIENT
  Age: 42 Year
  Sex: Female

DRUGS (1)
  1. OXYNORM CAPSULES [Suspect]
     Active Substance: OXYCODONE HYDROCHLORIDE
     Indication: PAIN
     Route: 065

REACTIONS (2)
  - Suicidal ideation [Unknown]
  - Mental status changes [Unknown]
